FAERS Safety Report 7576771-2 (Version None)
Quarter: 2011Q2

REPORT INFORMATION
  Report Type: 
  Country: None (occurrence: None)
  Receive Date: 20110628
  Receipt Date: 20100519
  Transmission Date: 20111010
  Serious: No
  Sender: FDA-Public Use
  Company Number: US-BAYER-201023584NA

PATIENT
  Sex: Female

DRUGS (1)
  1. MIRENA [Suspect]
     Indication: VAGINAL HAEMORRHAGE
     Dosage: 20 ?G/D, CONT
     Route: 015

REACTIONS (4)
  - ABDOMINAL DISTENSION [None]
  - VAGINAL INFECTION [None]
  - VAGINAL INFLAMMATION [None]
  - VULVOVAGINAL DISCOMFORT [None]
